FAERS Safety Report 16730981 (Version 4)
Quarter: 2020Q3

REPORT INFORMATION
  Report Type: Spontaneous
  Country: US (occurrence: US)
  Receive Date: 20190822
  Receipt Date: 20200909
  Transmission Date: 20201102
  Serious: Yes (Other)
  Sender: FDA-Public Use
  Company Number: US-PFIZER INC-2019358899

PATIENT
  Age: 12 Year
  Sex: Male
  Weight: 43 kg

DRUGS (9)
  1. MORPHINE SULFATE. [Suspect]
     Active Substance: MORPHINE SULFATE
     Indication: SEDATION
     Dosage: 2 MG (/DOSE), AS NEEDED (Q2H)
  2. METHADONE [Suspect]
     Active Substance: METHADONE HYDROCHLORIDE
     Indication: ANALGESIC THERAPY
  3. FENTANYL CITRATE. [Suspect]
     Active Substance: FENTANYL CITRATE
     Indication: ANALGESIC THERAPY
     Dosage: UNK(MAX DOSE 4 MCG/KG/H BETWEEN POD 0?2)
     Route: 040
  4. DEXMEDETOMIDINE HYDROCHLORIDE. [Concomitant]
     Active Substance: DEXMEDETOMIDINE HYDROCHLORIDE
     Dosage: UNK (5 D PREOPERATIVELY? POD 34, MAX DOSE 1.5 MCG/KG/H)
  5. FENTANYL CITRATE. [Suspect]
     Active Substance: FENTANYL CITRATE
     Indication: SEDATION
     Dosage: 1 UG/KG (/DOSE), AS NEEDED
     Route: 040
  6. HYDROMORPHONE HYDROCHLORIDE. [Suspect]
     Active Substance: HYDROMORPHONE HYDROCHLORIDE
     Indication: ANALGESIC THERAPY
     Dosage: UNK (POD 2?40: MAX DOSE 0.3 MG BASAL, 0.35 MG/DOSE PRN)
  7. MORPHINE SULFATE. [Suspect]
     Active Substance: MORPHINE SULFATE
     Indication: ANALGESIC THERAPY
  8. METHADONE [Suspect]
     Active Substance: METHADONE HYDROCHLORIDE
     Indication: SEDATION
     Dosage: UNK (POD 19?27: MAX DOSE 4 MG BID)
     Route: 042
  9. HYDROMORPHONE HYDROCHLORIDE. [Suspect]
     Active Substance: HYDROMORPHONE HYDROCHLORIDE
     Indication: SEDATION

REACTIONS (2)
  - Abdominal compartment syndrome [Recovered/Resolved]
  - Ileus [Recovered/Resolved]
